FAERS Safety Report 5752218-3 (Version None)
Quarter: 2008Q2

REPORT INFORMATION
  Report Type: 
  Country: None (occurrence: None)
  Receive Date: 20080529
  Receipt Date: 20080520
  Transmission Date: 20081010
  Serious: Yes (Death)
  Sender: FDA-Public Use
  Company Number: JP-ROCHE-556917

PATIENT
  Sex: Female
  Weight: 53 kg

DRUGS (8)
  1. XELODA [Suspect]
     Indication: BREAST CANCER METASTATIC
     Dosage: DRUG NAME: XELODA 300; 3 WEEKS ADMINISTRATION FOLLOWED BY 1 WEEK'S REST
     Route: 048
     Dates: start: 20070122, end: 20080110
  2. ENDOXAN [Concomitant]
     Route: 048
     Dates: start: 20031211, end: 20040415
  3. FARMORUBICIN [Concomitant]
     Route: 048
     Dates: start: 20031211, end: 20040415
  4. FLUOROURACIL [Concomitant]
     Route: 048
     Dates: start: 20031211, end: 20040415
  5. ARIMIDEX [Concomitant]
     Route: 048
     Dates: start: 20040426, end: 20070121
  6. AROMASIN [Concomitant]
     Route: 048
     Dates: start: 20071210, end: 20080110
  7. PYDOXAL [Concomitant]
     Route: 048
     Dates: start: 20070122, end: 20080110
  8. MUCOSTA [Concomitant]
     Route: 048
     Dates: start: 20070122, end: 20080110

REACTIONS (1)
  - INTESTINAL ISCHAEMIA [None]
